FAERS Safety Report 6124253-7 (Version None)
Quarter: 2009Q1

REPORT INFORMATION
  Report Type: 
  Country: None (occurrence: None)
  Receive Date: 20090319
  Receipt Date: 20090312
  Transmission Date: 20090719
  Serious: Yes (Other)
  Sender: FDA-Public Use
  Company Number: US-WATSON-2009-01668

PATIENT

DRUGS (1)
  1. MINOCYCLINE HYDROCHLORIDE (WATSON LABORATORIES) [Suspect]
     Indication: ACNE
     Dosage: UNK
     Route: 065

REACTIONS (2)
  - HYPERTHYROIDISM [None]
  - LUPUS-LIKE SYNDROME [None]
